FAERS Safety Report 4960434-3 (Version None)
Quarter: 2006Q2

REPORT INFORMATION
  Report Type: 
  Country: None (occurrence: None)
  Receive Date: 20060403
  Receipt Date: 20060321
  Transmission Date: 20061013
  Serious: Yes (Death, Other)
  Sender: FDA-Public Use
  Company Number: PHBS2006TR04313

PATIENT
  Age: 23 Year
  Sex: Male

DRUGS (6)
  1. ATGAM [Suspect]
     Indication: STEM CELL TRANSPLANT
     Route: 065
  2. PREDNISOLONE [Suspect]
     Indication: STEM CELL TRANSPLANT
     Route: 065
  3. MYCOPHENOLATE MOFETIL [Suspect]
     Indication: STEM CELL TRANSPLANT
     Route: 065
  4. CYCLOSPORINE [Suspect]
     Indication: STEM CELL TRANSPLANT
     Route: 065
  5. IRRADIATION [Concomitant]
     Indication: STEM CELL TRANSPLANT
  6. CYCLOPHOSPHAMIDE [Concomitant]
     Indication: STEM CELL TRANSPLANT

REACTIONS (5)
  - EPSTEIN-BARR VIRUS ANTIBODY POSITIVE [None]
  - EPSTEIN-BARR VIRUS INFECTION [None]
  - LYMPHOPROLIFERATIVE DISORDER [None]
  - MALIGNANT NEOPLASM PROGRESSION [None]
  - VIRAL LOAD INCREASED [None]
